FAERS Safety Report 22206573 (Version 1)
Quarter: 2023Q2

REPORT INFORMATION
  Report Type: Spontaneous
  Country: CR (occurrence: CR)
  Receive Date: 20230413
  Receipt Date: 20230413
  Transmission Date: 20230721
  Serious: Yes (Other)
  Sender: FDA-Public Use
  Company Number: CR-SUN PHARMACEUTICAL INDUSTRIES LTD-2023RR-384140

PATIENT
  Age: 78 Year
  Sex: Male

DRUGS (2)
  1. FLUOXETINE [Suspect]
     Active Substance: FLUOXETINE HYDROCHLORIDE
     Indication: Anxiety disorder
     Dosage: 20 MILLIGRAM, BID
     Route: 065
  2. DIMENHYDRINATE [Suspect]
     Active Substance: DIMENHYDRINATE
     Indication: Product used for unknown indication
     Dosage: UNK UNK, TID
     Route: 065

REACTIONS (8)
  - Nausea [Recovering/Resolving]
  - Tachycardia [Recovering/Resolving]
  - Tremor [Recovering/Resolving]
  - Decreased appetite [Recovering/Resolving]
  - Amnesia [Recovered/Resolved with Sequelae]
  - Visual impairment [Recovering/Resolving]
  - Self-medication [Unknown]
  - Cholinergic syndrome [Recovering/Resolving]
